FAERS Safety Report 4318254-9 (Version None)
Quarter: 2004Q1

REPORT INFORMATION
  Report Type: 
  Country: None (occurrence: None)
  Receive Date: 20040315
  Receipt Date: 20040226
  Transmission Date: 20041129
  Serious: Yes (Death, Hospitalization)
  Sender: FDA-Public Use
  Company Number: 176565

PATIENT
  Age: 48 Year
  Sex: Female

DRUGS (23)
  1. AVONEX [Suspect]
     Indication: MULTIPLE SCLEROSIS
     Dosage: 30 MCG QW IM
     Dates: start: 19990302
  2. GLUCOPHAGE ^UNS^ [Concomitant]
  3. AMARYL [Concomitant]
  4. LISINOPRIL W/HYDROCHLOROTHIAZIDE [Concomitant]
  5. NIFEDIPINE [Concomitant]
  6. CLONAZEPAM [Concomitant]
  7. ZOLOFT [Concomitant]
  8. WELLBUTRIN [Concomitant]
  9. TALACEN [Concomitant]
  10. ALEVE [Concomitant]
  11. TRAZODONE [Concomitant]
  12. SINGULAIR [Concomitant]
  13. ADVAIR DISKUS 100/50 [Concomitant]
  14. FLONASE [Concomitant]
  15. NASONEX [Concomitant]
  16. TESSALON [Concomitant]
  17. FLOVENT [Concomitant]
  18. ALBUTEROL [Concomitant]
  19. AEROBID [Concomitant]
  20. PREMARIN [Concomitant]
  21. ISOSORBIDE [Concomitant]
  22. ASPIRIN [Concomitant]
  23. NITROGLYCERIN ^DAK^ [Concomitant]

REACTIONS (22)
  - ANXIETY [None]
  - ARRHYTHMIA [None]
  - ARTERIOSPASM CORONARY [None]
  - ASTHMA [None]
  - BLEEDING TIME PROLONGED [None]
  - BLOOD MAGNESIUM DECREASED [None]
  - DEPRESSION [None]
  - DIABETES MELLITUS [None]
  - DIZZINESS [None]
  - DRUG EFFECT DECREASED [None]
  - FATIGUE [None]
  - HEART RATE INCREASED [None]
  - HYPOTENSION [None]
  - INFLUENZA LIKE ILLNESS [None]
  - LOSS OF CONSCIOUSNESS [None]
  - MYOCARDIAL INFARCTION [None]
  - OESOPHAGEAL SPASM [None]
  - PALPITATIONS [None]
  - PLATELET DISORDER [None]
  - PYREXIA [None]
  - STRESS SYMPTOMS [None]
  - SYNCOPE [None]
